FAERS Safety Report 18001009 (Version 1)
Quarter: 2020Q3

REPORT INFORMATION
  Report Type: Spontaneous
  Country: CA (occurrence: CA)
  Receive Date: 20200709
  Receipt Date: 20200709
  Transmission Date: 20201103
  Serious: Yes (Life-Threatening)
  Sender: FDA-Public Use
  Company Number: CA-TEVA-2020-CA-1797293

PATIENT
  Age: 12 Year
  Sex: Male
  Weight: 47 kg

DRUGS (18)
  1. LORATADINE. [Concomitant]
     Active Substance: LORATADINE
  2. ADCETRIS [Suspect]
     Active Substance: BRENTUXIMAB VEDOTIN
     Indication: ANAPLASTIC LARGE-CELL LYMPHOMA
     Route: 042
  3. DIMENHYDRINATE. [Concomitant]
     Active Substance: DIMENHYDRINATE
  4. LIDOCAINE. [Concomitant]
     Active Substance: LIDOCAINE
  5. ACETAMINOPHEN. [Concomitant]
     Active Substance: ACETAMINOPHEN
  6. NYSTATIN. [Concomitant]
     Active Substance: NYSTATIN
  7. ONDANSETRON [Concomitant]
     Active Substance: ONDANSETRON
  8. CALCIUM CARBONATE. [Concomitant]
     Active Substance: CALCIUM CARBONATE
  9. METHOTREXATE. [Suspect]
     Active Substance: METHOTREXATE
     Indication: ANAPLASTIC LARGE-CELL LYMPHOMA
     Route: 042
  10. CYTARABINE INJECTION [Suspect]
     Active Substance: CYTARABINE
     Route: 042
  11. FAMOTIDINE. [Concomitant]
     Active Substance: FAMOTIDINE
  12. ETOPOSIDE. [Suspect]
     Active Substance: ETOPOSIDE
     Indication: ANAPLASTIC LARGE-CELL LYMPHOMA
     Route: 042
  13. PENTAMIDINE ISETHIONATE INJ 300MG/VIAL BP [Concomitant]
  14. GABAPENTIN. [Concomitant]
     Active Substance: GABAPENTIN
  15. HEPARIN CALCIUM [Concomitant]
     Active Substance: HEPARIN CALCIUM
  16. MORPHINE [Concomitant]
     Active Substance: MORPHINE
  17. ENOXAPARIN [Concomitant]
     Active Substance: ENOXAPARIN
  18. POLYETHYLENE GLYCOL [Concomitant]
     Active Substance: POLYETHYLENE GLYCOLS

REACTIONS (2)
  - Pancytopenia [Unknown]
  - Transfusion [Unknown]
